FAERS Safety Report 5067496-6 (Version None)
Quarter: 2006Q3

REPORT INFORMATION
  Report Type: 
  Country: None (occurrence: None)
  Receive Date: 20060728
  Receipt Date: 20060622
  Transmission Date: 20061208
  Serious: Yes (Hospitalization, Other)
  Sender: FDA-Public Use
  Company Number: US200607004022

PATIENT
  Age: 51 Year
  Sex: Male
  Weight: 126.5 kg

DRUGS (9)
  1. HUMALOG [Suspect]
     Dates: end: 20060101
  2. BYETTA (EXENATIDE) PEN, DISPOSABLE [Concomitant]
  3. GLIPIZIDE [Concomitant]
  4. LIPITOR [Concomitant]
  5. PLAVIX [Concomitant]
  6. WARFARIN SODIUM [Concomitant]
  7. BETAPACE [Concomitant]
  8. METOPROLOL (METOPROLOL) [Concomitant]
  9. ASPIRIN [Concomitant]

REACTIONS (17)
  - ANGINA UNSTABLE [None]
  - ATRIAL FIBRILLATION [None]
  - BLOOD GLUCOSE DECREASED [None]
  - BLOOD GLUCOSE INCREASED [None]
  - CORONARY ARTERY OCCLUSION [None]
  - DECREASED APPETITE [None]
  - DIARRHOEA [None]
  - DRUG DOSE OMISSION [None]
  - ERUCTATION [None]
  - FLATULENCE [None]
  - FLUID RETENTION [None]
  - HYPERHIDROSIS [None]
  - NAUSEA [None]
  - PALPITATIONS [None]
  - SOMNOLENCE [None]
  - WEIGHT DECREASED [None]
  - WEIGHT INCREASED [None]
